FAERS Safety Report 17478864 (Version 1)
Quarter: 2020Q1

REPORT INFORMATION
  Report Type: Report from Study
  Country: CA (occurrence: CA)
  Receive Date: 20200228
  Receipt Date: 20200228
  Transmission Date: 20200409
  Serious: Yes (Other)
  Sender: FDA-Public Use
  Company Number: CA-JNJFOC-20191028026

PATIENT
  Sex: Female
  Weight: 54.5 kg

DRUGS (2)
  1. STELARA [Suspect]
     Active Substance: USTEKINUMAB
     Route: 058
  2. STELARA [Suspect]
     Active Substance: USTEKINUMAB
     Indication: CROHN^S DISEASE
     Route: 058
     Dates: start: 20190627

REACTIONS (5)
  - Crohn^s disease [Not Recovered/Not Resolved]
  - Dizziness [Unknown]
  - Urinary tract infection [Unknown]
  - Dyspepsia [Recovered/Resolved]
  - Enterostomy [Unknown]

NARRATIVE: CASE EVENT DATE: 2019
